FAERS Safety Report 6079064-8 (Version None)
Quarter: 2009Q1

REPORT INFORMATION
  Report Type: 
  Country: None (occurrence: None)
  Receive Date: 20090216
  Receipt Date: 20090206
  Transmission Date: 20090719
  Serious: Yes (Other)
  Sender: FDA-Public Use
  Company Number: GR-NOVOPROD-272826

PATIENT
  Age: 7 Year
  Sex: Female

DRUGS (2)
  1. ACTRAPID PENFILL [Suspect]
     Indication: TYPE 1 DIABETES MELLITUS
     Dates: start: 20000909, end: 20050921
  2. PROTAPHANE [Suspect]
     Indication: TYPE 1 DIABETES MELLITUS
     Dates: start: 20000909, end: 20090921

REACTIONS (5)
  - ABDOMINAL PAIN [None]
  - HEADACHE [None]
  - INJECTION SITE ERYTHEMA [None]
  - INJECTION SITE INDURATION [None]
  - VASCULITIS [None]
